FAERS Safety Report 6204151-0 (Version None)
Quarter: 2009Q2

REPORT INFORMATION
  Report Type: 
  Country: None (occurrence: None)
  Receive Date: 20090526
  Receipt Date: 20090526
  Transmission Date: 20091009
  Serious: Yes (Hospitalization)
  Sender: FDA-Public Use
  Company Number: None

PATIENT
  Sex: Male
  Weight: 114.4 kg

DRUGS (2)
  1. PREDNISONE [Suspect]
     Dosage: 120 MG
  2. TAXOTERE [Suspect]
     Dosage: 177 MG
     Dates: end: 20090414

REACTIONS (5)
  - ANAEMIA [None]
  - ASTHENIA [None]
  - CONSTIPATION [None]
  - DEHYDRATION [None]
  - GRAVITATIONAL OEDEMA [None]
